FAERS Safety Report 6458949-4 (Version None)
Quarter: 2009Q4

REPORT INFORMATION
  Report Type: 
  Country: None (occurrence: None)
  Receive Date: 20091127
  Receipt Date: 20091116
  Transmission Date: 20100525
  Serious: Yes (Other)
  Sender: FDA-Public Use
  Company Number: DE-ELI_LILLY_AND_COMPANY-DE200910001340

PATIENT
  Sex: Male
  Weight: 68 kg

DRUGS (4)
  1. ZYPADHERA [Suspect]
     Indication: SCHIZOPHRENIA, PARANOID TYPE
     Dosage: 300 MG, UNKNOWN
     Route: 030
     Dates: start: 20090730, end: 20090813
  2. ZYPREXA [Suspect]
     Indication: SCHIZOPHRENIA, PARANOID TYPE
     Dosage: 30 MG, DAILY (1/D)
     Route: 048
     Dates: start: 20090630, end: 20090921
  3. EUNERPAN [Concomitant]
     Indication: SLEEP DISORDER
     Dosage: 50 MG, UNK
     Route: 048
     Dates: start: 20090620
  4. AKINETON /00079501/ [Concomitant]
     Indication: EXTRAPYRAMIDAL DISORDER
     Dosage: 4 MG, UNK
     Route: 048
     Dates: start: 20090620

REACTIONS (5)
  - BURNING SENSATION [None]
  - HEADACHE [None]
  - HYPERTENSION [None]
  - PHARYNGEAL ERYTHEMA [None]
  - RASH MACULAR [None]
